FAERS Safety Report 4761700-7 (Version None)
Quarter: 2005Q3

REPORT INFORMATION
  Report Type: 
  Country: None (occurrence: None)
  Receive Date: 20050906
  Receipt Date: 20050826
  Transmission Date: 20060218
  Serious: Yes (Death)
  Sender: FDA-Public Use
  Company Number: US-JNJFOC-20050800496

PATIENT
  Sex: Male
  Weight: 25.6 kg

DRUGS (5)
  1. TOPAMAX [Suspect]
     Route: 048
  2. CARBATROL [Concomitant]
     Dosage: (300 MG DAILY IN MORNING AND 400 MG DAILY AT NIGHT)
     Route: 048
  3. KEPPRA [Concomitant]
     Route: 048
  4. ABILIFY [Concomitant]
     Dosage: (1CC IN MORNING AND 2CC AT NIGHT)
     Route: 048
  5. DIASTAT [Concomitant]

REACTIONS (3)
  - ASPIRATION [None]
  - EPISTAXIS [None]
  - SUDDEN DEATH [None]
